FAERS Safety Report 16655843 (Version 1)
Quarter: 2019Q3

REPORT INFORMATION
  Report Type: Spontaneous
  Country: US (occurrence: US)
  Receive Date: 20190731
  Receipt Date: 20190731
  Transmission Date: 20191004
  Serious: No
  Sender: FDA-Public Use
  Company Number: None

PATIENT
  Age: 49 Year
  Sex: Female
  Weight: 109.8 kg

DRUGS (1)
  1. CHANTIX [Suspect]
     Active Substance: VARENICLINE TARTRATE
     Indication: SMOKING CESSATION THERAPY
     Dosage: ?          QUANTITY:28 TABLET(S);?
     Route: 048

REACTIONS (6)
  - Drug ineffective [None]
  - Mood altered [None]
  - Nausea [None]
  - Middle insomnia [None]
  - Depression [None]
  - Abnormal dreams [None]

NARRATIVE: CASE EVENT DATE: 20190729
